FAERS Safety Report 22348488 (Version 1)
Quarter: 2023Q2

REPORT INFORMATION
  Report Type: Spontaneous
  Country: US (occurrence: US)
  Receive Date: 20230522
  Receipt Date: 20230522
  Transmission Date: 20230721
  Serious: Yes (Life-Threatening, Hospitalization, Other)
  Sender: FDA-Public Use
  Company Number: US-APOTEX-2015AP006477

PATIENT
  Age: 17 Year
  Sex: Male

DRUGS (4)
  1. DIVALPROEX SODIUM [Suspect]
     Active Substance: DIVALPROEX SODIUM
     Indication: Product used for unknown indication
     Dosage: 146 MILLIGRAM/KILOGRAM
     Route: 048
  2. GUANFACINE [Suspect]
     Active Substance: GUANFACINE
     Indication: Product used for unknown indication
     Dosage: 0.39 MILLIGRAM/KILOGRAM
     Route: 048
  3. OLANZAPINE [Suspect]
     Active Substance: OLANZAPINE
     Indication: Product used for unknown indication
     Dosage: 2.9 MILLIGRAM/KILOGRAM
     Route: 048
  4. IMIPRAMINE [Suspect]
     Active Substance: IMIPRAMINE
     Indication: Product used for unknown indication
     Dosage: 1.9 MILLIGRAM/KILOGRAM
     Route: 048

REACTIONS (4)
  - Brain oedema [Recovering/Resolving]
  - Pneumonia [Recovering/Resolving]
  - Hyperammonaemia [Recovered/Resolved]
  - Overdose [Recovered/Resolved]
